FAERS Safety Report 7339699-9 (Version None)
Quarter: 2011Q1

REPORT INFORMATION
  Report Type: 
  Country: None (occurrence: None)
  Receive Date: 20110304
  Receipt Date: 20110304
  Transmission Date: 20110831
  Serious: Yes (Life-Threatening)
  Sender: FDA-Public Use
  Company Number: None

PATIENT
  Sex: Female
  Weight: 63.7 kg

DRUGS (1)
  1. LANTUS [Suspect]
     Indication: TYPE 2 DIABETES MELLITUS
     Dosage: 100 UNITS X 1 SUBCUT PRIOR TO ADMISSION
     Route: 058
     Dates: end: 20101204

REACTIONS (4)
  - BLOOD GLUCOSE DECREASED [None]
  - MALAISE [None]
  - UNRESPONSIVE TO STIMULI [None]
  - FEELING HOT [None]
